FAERS Safety Report 21750356 (Version 1)
Quarter: 2022Q4

REPORT INFORMATION
  Report Type: Spontaneous
  Country: US (occurrence: US)
  Receive Date: 20221219
  Receipt Date: 20221219
  Transmission Date: 20230113
  Serious: No
  Sender: FDA-Public Use
  Company Number: US-UPSHER-SMITH LABORATORIES, LLC-2022USL00821

PATIENT
  Sex: Female
  Weight: 53.515 kg

DRUGS (14)
  1. POTASSIUM CHLORIDE [Suspect]
     Active Substance: POTASSIUM CHLORIDE
     Indication: Mineral supplementation
     Dosage: 10 MEQ, 2X/DAY
     Route: 048
     Dates: start: 2020
  2. POTASSIUM CHLORIDE [Suspect]
     Active Substance: POTASSIUM CHLORIDE
     Indication: Mineral supplementation
     Dosage: 20 MEQ, 1X/DAY (EXCEPT ON TUESDAYS AND FRIDAYS)
     Route: 048
  3. POTASSIUM CHLORIDE [Suspect]
     Active Substance: POTASSIUM CHLORIDE
     Dosage: 20 MEQ, 2X/DAY ON TUESDAYS AND FRIDAYS (IN ADDITION TO 20 MEQ 1X/DAY ON ALL OTHER DAYS)
     Route: 048
  4. ELIQUIS [Concomitant]
     Active Substance: APIXABAN
  5. COREG [Concomitant]
     Active Substance: CARVEDILOL
  6. LEXAPRO [Concomitant]
     Active Substance: ESCITALOPRAM OXALATE
  7. LASIX [Concomitant]
     Active Substance: FUROSEMIDE
  8. OMEPRAZOLE [Concomitant]
     Active Substance: OMEPRAZOLE
  9. MINERALS\VITAMINS [Concomitant]
     Active Substance: MINERALS\VITAMINS
  10. METOLAZONE [Concomitant]
     Active Substance: METOLAZONE
  11. AZOPT [Concomitant]
     Active Substance: BRINZOLAMIDE
  12. SIMBRINZA [Concomitant]
     Active Substance: BRIMONIDINE TARTRATE\BRINZOLAMIDE
  13. COMBIGAN [Concomitant]
     Active Substance: BRIMONIDINE TARTRATE\TIMOLOL MALEATE
  14. LUMIGAN [Concomitant]
     Active Substance: BIMATOPROST

REACTIONS (3)
  - Muscle spasms [Recovered/Resolved]
  - Product use complaint [Not Recovered/Not Resolved]
  - Product administration error [Unknown]

NARRATIVE: CASE EVENT DATE: 20220101
